FAERS Safety Report 6628507-7 (Version None)
Quarter: 2010Q1

REPORT INFORMATION
  Report Type: 
  Country: None (occurrence: None)
  Receive Date: 20100225
  Receipt Date: 20090917
  Transmission Date: 20100710
  Serious: Yes (Other)
  Sender: FDA-Public Use
  Company Number: 657269

PATIENT
  Age: 15 Year
  Sex: Male
  Weight: 88.5 kg

DRUGS (3)
  1. ACCUTANE [Suspect]
     Indication: ACNE CYSTIC
     Dosage: 20 MG DAILY
     Dates: start: 20001129, end: 20030501
  2. AMNESTEEM [Suspect]
     Indication: ACNE
     Dosage: 10 MG 2 PER DAY
     Dates: start: 20030507, end: 20030707
  3. BENZAMYCIN (BENZOYL PEROXIDE/ERYTHROMYCIN) [Concomitant]

REACTIONS (9)
  - COLITIS [None]
  - CROHN'S DISEASE [None]
  - DEPRESSION [None]
  - DIARRHOEA [None]
  - DRY SKIN [None]
  - INFLAMMATORY BOWEL DISEASE [None]
  - LIP DRY [None]
  - ORAL HERPES [None]
  - PSORIASIS [None]
